FAERS Safety Report 16295381 (Version 1)
Quarter: 2019Q2

REPORT INFORMATION
  Report Type: Spontaneous
  Country: DE (occurrence: DE)
  Receive Date: 20190509
  Receipt Date: 20190509
  Transmission Date: 20190711
  Serious: Yes (Other)
  Sender: FDA-Public Use
  Company Number: PHHY2019DE106415

PATIENT
  Age: 53 Year
  Sex: Female

DRUGS (1)
  1. TACROLIMUS. [Suspect]
     Active Substance: TACROLIMUS
     Indication: PRODUCT USED FOR UNKNOWN INDICATION
     Dosage: 0.03 MG/KG, UNKNOWN FREQ. (CONTINUOUSLY/24 H)
     Route: 042
     Dates: start: 20130619, end: 20130703

REACTIONS (1)
  - Nervous system disorder [Unknown]
